FAERS Safety Report 5660364-8 (Version None)
Quarter: 2008Q1

REPORT INFORMATION
  Report Type: 
  Country: None (occurrence: None)
  Receive Date: 20080311
  Receipt Date: 20071009
  Transmission Date: 20080703
  Serious: No
  Sender: FDA-Public Use
  Company Number: US-BAYER-200713299BCC

PATIENT
  Age: 15 Year
  Sex: Female

DRUGS (7)
  1. ALEVE [Suspect]
     Indication: DRUG USE FOR UNKNOWN INDICATION
     Dosage: TOTAL DAILY DOSE: 440 MG  UNIT DOSE: 220 MG
     Route: 048
     Dates: start: 20070901
  2. LITHIUM CARBONATE [Concomitant]
  3. THYROID TAB [Concomitant]
  4. URECHOLINE [Concomitant]
  5. LASIX [Concomitant]
  6. PROVERA [Concomitant]
  7. XALATAN [Concomitant]

REACTIONS (1)
  - ABDOMINAL PAIN UPPER [None]
